FAERS Safety Report 5146077-X (Version None)
Quarter: 2006Q4

REPORT INFORMATION
  Report Type: 
  Country: None (occurrence: None)
  Receive Date: 20061102
  Receipt Date: 20061023
  Transmission Date: 20070319
  Serious: Yes (Other)
  Sender: FDA-Public Use
  Company Number: 2006129982

PATIENT
  Sex: Male

DRUGS (2)
  1. XALATAN [Suspect]
  2. DORZOLAMIDE HYDROCHLORIDE/TIMOLOL MALEATE (DORZOLAMIDE HYDROCHLORIDE, [Suspect]

REACTIONS (1)
  - DERMATITIS EXFOLIATIVE [None]
